FAERS Safety Report 19042197 (Version 1)
Quarter: 2021Q1

REPORT INFORMATION
  Report Type: Spontaneous
  Country: US (occurrence: US)
  Receive Date: 20210323
  Receipt Date: 20210323
  Transmission Date: 20210420
  Serious: No
  Sender: FDA-Public Use
  Company Number: US-DRREDDYS-USA/USA/21/0132424

PATIENT
  Age: 27 Year
  Sex: Female

DRUGS (2)
  1. HABITROL [Suspect]
     Active Substance: NICOTINE
     Dosage: 1 PATCH DAILY
     Route: 062
     Dates: start: 20210222
  2. HABITROL [Suspect]
     Active Substance: NICOTINE
     Indication: TOBACCO USER
     Dosage: 14 MG STRENGTH FOR COUPLE OF MONTHS, 1 PATCH DAILY
     Route: 062

REACTIONS (5)
  - Irritability [Unknown]
  - Hot flush [Unknown]
  - Insomnia [Unknown]
  - Product use issue [Unknown]
  - Depressed mood [Unknown]
